FAERS Safety Report 16421038 (Version 1)
Quarter: 2019Q3

REPORT INFORMATION
  Report Type: Spontaneous
  Country: US (occurrence: US)
  Receive Date: 20190611
  Receipt Date: 20190611
  Transmission Date: 20191004
  Serious: Yes (Other)
  Sender: FDA-Public Use
  Company Number: None

PATIENT
  Age: 61 Year
  Sex: Female

DRUGS (2)
  1. MELOXICAM 7.5MG TABLETS [Concomitant]
     Active Substance: MELOXICAM
     Dates: start: 20190425
  2. NUCALA [Suspect]
     Active Substance: MEPOLIZUMAB
     Indication: ASTHMA
     Dosage: ?          OTHER FREQUENCY:EVERY 4 WEEKS;?
     Route: 058

REACTIONS (2)
  - Hernia [None]
  - Antibiotic therapy [None]

NARRATIVE: CASE EVENT DATE: 20190606
